FAERS Safety Report 6056511-9 (Version None)
Quarter: 2009Q1

REPORT INFORMATION
  Report Type: 
  Country: None (occurrence: None)
  Receive Date: 20090126
  Receipt Date: 20090107
  Transmission Date: 20090719
  Serious: Yes (Death)
  Sender: FDA-Public Use
  Company Number: B0553752A

PATIENT
  Age: 47 Year
  Sex: Male

DRUGS (4)
  1. LABETALOL HYDROCHLORIDE (GENERIC) [Suspect]
     Dosage: ORAL
     Route: 048
  2. VERAPAMIL [Suspect]
     Dosage: ORAL
     Route: 048
  3. CLONIDINE [Suspect]
     Dosage: ORAL
     Route: 048
  4. PROPRANOLOL HCL [Suspect]
     Dosage: ORAL
     Route: 048

REACTIONS (1)
  - COMPLETED SUICIDE [None]
